FAERS Safety Report 8542361-8 (Version None)
Quarter: 2012Q3

REPORT INFORMATION
  Report Type: 
  Country: None (occurrence: None)
  Receive Date: 20120726
  Receipt Date: 20110921
  Transmission Date: 20120928
  Serious: Yes (Hospitalization)
  Sender: FDA-Public Use
  Company Number: US-ASTRAZENECA-2011SE49021

PATIENT
  Age: 52 Year
  Sex: Male

DRUGS (1)
  1. SEROQUEL [Suspect]
     Dosage: TWO TIMES A DAY
     Route: 048

REACTIONS (7)
  - MENTAL DISORDER [None]
  - FEELING ABNORMAL [None]
  - INSOMNIA [None]
  - DRUG INEFFECTIVE [None]
  - DRUG DOSE OMISSION [None]
  - MANIA [None]
  - MIDDLE INSOMNIA [None]
